FAERS Safety Report 17988163 (Version 1)
Quarter: 2020Q3

REPORT INFORMATION
  Report Type: Spontaneous
  Country: US (occurrence: US)
  Receive Date: 20200706
  Receipt Date: 20200706
  Transmission Date: 20201103
  Serious: No
  Sender: FDA-Public Use
  Company Number: None

PATIENT
  Age: 56 Year
  Sex: Female
  Weight: 94.8 kg

DRUGS (20)
  1. BUSPIRONE [Concomitant]
     Active Substance: BUSPIRONE HYDROCHLORIDE
  2. PROCHLORPERAZINE. [Concomitant]
     Active Substance: PROCHLORPERAZINE
  3. DRONABINOL. [Concomitant]
     Active Substance: DRONABINOL
  4. PERCOCET [Concomitant]
     Active Substance: ACETAMINOPHEN\OXYCODONE HYDROCHLORIDE
  5. TOPOTECAN [Concomitant]
     Active Substance: TOPOTECAN HYDROCHLORIDE
  6. CHANTIX [Concomitant]
     Active Substance: VARENICLINE TARTRATE
  7. MORPHINE [Concomitant]
     Active Substance: MORPHINE
  8. PANTOPRAZOLE [Concomitant]
     Active Substance: PANTOPRAZOLE
  9. ZOFRAN [Concomitant]
     Active Substance: ONDANSETRON HYDROCHLORIDE
  10. PAROXETINE. [Concomitant]
     Active Substance: PAROXETINE
  11. ALBUTEROL. [Concomitant]
     Active Substance: ALBUTEROL
  12. CLONAZEPAM. [Concomitant]
     Active Substance: CLONAZEPAM
  13. GABAPENTIN. [Concomitant]
     Active Substance: GABAPENTIN
  14. HYCAMTIN [Suspect]
     Active Substance: TOPOTECAN HYDROCHLORIDE
     Indication: LUNG NEOPLASM MALIGNANT
     Route: 048
     Dates: start: 20200513, end: 20200706
  15. INSULIN LISPRO [Concomitant]
     Active Substance: INSULIN LISPRO
  16. ATIVAN [Concomitant]
     Active Substance: LORAZEPAM
  17. VITAMIN D3 [Concomitant]
     Active Substance: CHOLECALCIFEROL
  18. HYCAMTIN [Suspect]
     Active Substance: TOPOTECAN HYDROCHLORIDE
     Indication: LUNG NEOPLASM MALIGNANT
     Route: 048
     Dates: start: 20200512, end: 20200706
  19. TYLENOL [Concomitant]
     Active Substance: ACETAMINOPHEN
  20. INSULIN ASPART [Concomitant]
     Active Substance: INSULIN ASPART

REACTIONS (1)
  - Disease progression [None]

NARRATIVE: CASE EVENT DATE: 20200706
